FAERS Safety Report 4594599-2 (Version None)
Quarter: 2005Q1

REPORT INFORMATION
  Report Type: 
  Country: None (occurrence: None)
  Receive Date: 20050301
  Receipt Date: 20040921
  Transmission Date: 20050727
  Serious: No
  Sender: FDA-Public Use
  Company Number: US-BRISTOL-MYERS SQUIBB COMPANY-12709648

PATIENT
  Age: 70 Year
  Sex: Male

DRUGS (11)
  1. ERBITUX [Suspect]
     Indication: COLON CANCER METASTATIC
     Dosage: LOADING DOSE 800 MG, RECHALLENGED 06-OCT-04 (200 MG/M2 = 400 MG)
     Route: 042
     Dates: start: 20040908, end: 20040908
  2. BENADRYL [Suspect]
     Indication: PREMEDICATION
     Route: 042
     Dates: start: 20040908, end: 20040908
  3. IRINOTECAN HCL [Concomitant]
  4. COUMADIN [Concomitant]
  5. LOPRESSOR [Concomitant]
  6. ATENOLOL [Concomitant]
  7. DIGOXIN [Concomitant]
  8. POTASSIUM CHLORIDE [Concomitant]
  9. LOTREL [Concomitant]
  10. LOTENSIN [Concomitant]
  11. TENEX [Concomitant]

REACTIONS (2)
  - DERMATITIS ACNEIFORM [None]
  - RESTLESS LEGS SYNDROME [None]
